FAERS Safety Report 4719010-X (Version None)
Quarter: 2005Q3

REPORT INFORMATION
  Report Type: 
  Country: None (occurrence: None)
  Receive Date: 20050720
  Receipt Date: 20050701
  Transmission Date: 20060218
  Serious: Yes (Hospitalization)
  Sender: FDA-Public Use
  Company Number: JP_050706999

PATIENT
  Age: 68 Year
  Sex: Female

DRUGS (3)
  1. EVISTA [Suspect]
     Indication: OSTEOPOROSIS POSTMENOPAUSAL
     Dosage: 60 MG/1 DAY
     Dates: start: 20040726
  2. LIPITOR [Concomitant]
  3. SHAKUYKANZOUTOU [Concomitant]

REACTIONS (2)
  - CARDIAC PACEMAKER INSERTION [None]
  - FACE OEDEMA [None]
